FAERS Safety Report 8413446-1 (Version None)
Quarter: 2012Q2

REPORT INFORMATION
  Report Type: 
  Country: None (occurrence: None)
  Receive Date: 20120605
  Receipt Date: 20120530
  Transmission Date: 20120825
  Serious: Yes (Hospitalization)
  Sender: FDA-Public Use
  Company Number: US-ROCHE-1073523

PATIENT
  Age: 47 Year
  Sex: Female
  Weight: 43.8 kg

DRUGS (3)
  1. DOCETAXEL [Suspect]
     Indication: HEAD AND NECK CANCER
     Route: 042
     Dates: start: 20120406
  2. CISPLATIN [Suspect]
     Indication: HEAD AND NECK CANCER
     Route: 042
     Dates: start: 20120406
  3. AVASTIN [Suspect]
     Indication: HEAD AND NECK CANCER
     Route: 042
     Dates: start: 20120406

REACTIONS (6)
  - DIARRHOEA [None]
  - SOMNOLENCE [None]
  - ASPARTATE AMINOTRANSFERASE INCREASED [None]
  - RENAL FAILURE ACUTE [None]
  - DEHYDRATION [None]
  - ALANINE AMINOTRANSFERASE INCREASED [None]
